FAERS Safety Report 6286541-3 (Version None)
Quarter: 2009Q3

REPORT INFORMATION
  Report Type: 
  Country: None (occurrence: None)
  Receive Date: 20090728
  Receipt Date: 20090720
  Transmission Date: 20100115
  Serious: Yes (Hospitalization)
  Sender: FDA-Public Use
  Company Number: FR-BRISTOL-MYERS SQUIBB COMPANY-14710388

PATIENT
  Age: 44 Year
  Sex: Male

DRUGS (4)
  1. REYATAZ [Suspect]
     Indication: HIV INFECTION
     Dosage: 1 DF = 1 TAB, 2 INTAKES/D
     Route: 048
     Dates: start: 20080911
  2. ISENTRESS [Suspect]
     Indication: HIV INFECTION
     Dosage: 1 DF = 1 TAB 400MG
     Route: 048
     Dates: start: 20080911
  3. NORVIR [Suspect]
     Indication: HIV INFECTION
     Dosage: 1 DF = 1 CAPSULE 100MG
     Route: 048
     Dates: start: 20080911
  4. COMBIVIR [Suspect]
     Indication: HIV INFECTION
     Dosage: 1 DF = 1 TAB 150MG/300MG
     Route: 048
     Dates: start: 20080911

REACTIONS (1)
  - TENDON RUPTURE [None]
